FAERS Safety Report 24588264 (Version 1)
Quarter: 2024Q4

REPORT INFORMATION
  Report Type: Report from Study
  Country: US (occurrence: US)
  Receive Date: 20241107
  Receipt Date: 20241107
  Transmission Date: 20250115
  Serious: Yes (Hospitalization)
  Sender: TAKEDA
  Company Number: US-TAKEDA-2024TUS109158

PATIENT
  Sex: Female

DRUGS (62)
  1. MARIBAVIR [Suspect]
     Active Substance: MARIBAVIR
     Indication: Cytomegalovirus infection
     Dosage: 400 MILLIGRAM, BID
     Route: 048
     Dates: start: 20241015
  2. MARIBAVIR [Suspect]
     Active Substance: MARIBAVIR
     Dosage: 400 MILLIGRAM, BID
     Route: 048
     Dates: start: 20241023
  3. CRESEMBA [Concomitant]
     Active Substance: ISAVUCONAZONIUM SULFATE
     Dosage: 372 MILLIGRAM, QD
     Route: 050
     Dates: start: 20241010
  4. CRESEMBA [Concomitant]
     Active Substance: ISAVUCONAZONIUM SULFATE
     Dosage: 372 MILLIGRAM, QD
     Route: 050
     Dates: start: 20241023
  5. CRESEMBA [Concomitant]
     Active Substance: ISAVUCONAZONIUM SULFATE
     Dosage: 372 MILLIGRAM, QD
     Route: 050
     Dates: start: 20241024
  6. MICAFUNGIN [Concomitant]
     Active Substance: MICAFUNGIN SODIUM
     Dosage: 200 MILLIGRAM, QD
     Route: 042
     Dates: start: 20241023
  7. NYSTATIN [Concomitant]
     Active Substance: NYSTATIN
     Dosage: UNK UNK, TID
     Route: 061
     Dates: start: 20240910
  8. NYSTATIN [Concomitant]
     Active Substance: NYSTATIN
     Dosage: UNK UNK, BID
     Route: 061
     Dates: start: 20241006
  9. NYSTATIN [Concomitant]
     Active Substance: NYSTATIN
     Dosage: UNK UNK, BID
     Route: 061
     Dates: start: 20241022
  10. NYSTATIN [Concomitant]
     Active Substance: NYSTATIN
     Dosage: UNK UNK, TID
     Route: 061
  11. NYSTATIN [Concomitant]
     Active Substance: NYSTATIN
     Dosage: UNK UNK, BID
     Route: 061
     Dates: start: 20241023
  12. NYSTATIN [Concomitant]
     Active Substance: NYSTATIN
     Dosage: UNK UNK, TID
     Route: 061
     Dates: end: 20241023
  13. BACITRACIN [Concomitant]
     Active Substance: BACITRACIN
     Dosage: UNK UNK, QD
     Route: 061
     Dates: start: 20241018
  14. BACITRACIN [Concomitant]
     Active Substance: BACITRACIN
     Dosage: UNK UNK, QD
     Route: 061
     Dates: start: 20241023
  15. LEVAQUIN [Concomitant]
     Active Substance: LEVOFLOXACIN
     Dosage: 750 MILLIGRAM, QD
     Route: 050
     Dates: start: 20241008
  16. LEVAQUIN [Concomitant]
     Active Substance: LEVOFLOXACIN
     Dosage: 750 MILLIGRAM, QD
     Route: 050
     Dates: start: 20241017
  17. VALTREX [Concomitant]
     Active Substance: VALACYCLOVIR HYDROCHLORIDE
     Dosage: 500 MILLIGRAM, QD
     Route: 048
     Dates: start: 20240815
  18. VALTREX [Concomitant]
     Active Substance: VALACYCLOVIR HYDROCHLORIDE
     Dosage: 500 MILLIGRAM, QD
     Route: 048
     Dates: start: 20241008
  19. VALTREX [Concomitant]
     Active Substance: VALACYCLOVIR HYDROCHLORIDE
     Dosage: 500 MILLIGRAM, QD
     Route: 048
     Dates: start: 20241023
  20. VALTREX [Concomitant]
     Active Substance: VALACYCLOVIR HYDROCHLORIDE
     Dosage: 500 MILLIGRAM, QD
     Route: 048
     Dates: start: 20241024
  21. MYCAMINE [Concomitant]
     Active Substance: MICAFUNGIN SODIUM
     Dosage: 50 MILLIGRAM, QD
     Route: 042
     Dates: start: 20240614
  22. MYCAMINE [Concomitant]
     Active Substance: MICAFUNGIN SODIUM
     Dosage: 200 MILLIGRAM, QD
     Route: 042
     Dates: start: 20240925
  23. MYCAMINE [Concomitant]
     Active Substance: MICAFUNGIN SODIUM
     Dosage: 200 MILLIGRAM, QD
     Route: 042
     Dates: start: 20241024
  24. MYCAMINE [Concomitant]
     Active Substance: MICAFUNGIN SODIUM
     Dosage: 200 MILLIGRAM, QD
     Route: 042
     Dates: start: 20241025
  25. TYLENOL [Concomitant]
     Active Substance: ACETAMINOPHEN
     Dosage: 650 MILLIGRAM
     Route: 048
     Dates: start: 20241021
  26. ELAVIL [Concomitant]
     Active Substance: AMITRIPTYLINE HYDROCHLORIDE
     Dosage: 50 MILLIGRAM
     Route: 048
     Dates: start: 20241022
  27. BUMEX [Concomitant]
     Active Substance: BUMETANIDE
     Dosage: 2 MILLIGRAM, BID
     Route: 042
     Dates: start: 20241023
  28. DIURIL [Concomitant]
     Active Substance: CHLOROTHIAZIDE
     Dosage: 500 MILLIGRAM, Q12H
     Route: 042
     Dates: start: 20241023
  29. DEXTROSE [Concomitant]
     Active Substance: DEXTROSE MONOHYDRATE
     Dosage: 250 MILLILITER
     Route: 042
  30. DEXTROSE [Concomitant]
     Active Substance: DEXTROSE MONOHYDRATE
     Dosage: 10 MILLILITER
     Route: 042
     Dates: start: 20241019
  31. BENTYL [Concomitant]
     Active Substance: DICYCLOMINE HYDROCHLORIDE
     Dosage: 20 MILLIGRAM, TID
     Route: 048
     Dates: start: 20241023
  32. DULOXETINE [Concomitant]
     Active Substance: DULOXETINE
     Dosage: 60 MILLIGRAM, QD
     Route: 050
     Dates: start: 20241022
  33. FLONASE [Concomitant]
     Active Substance: FLUTICASONE PROPIONATE
     Dosage: UNK UNK, BID
     Route: 045
     Dates: start: 20241022
  34. NEURONTIN [Concomitant]
     Active Substance: GABAPENTIN
     Dosage: 800 MILLIGRAM, TID
     Route: 048
  35. GLUCAGON [Concomitant]
     Active Substance: GLUCAGON
     Dosage: 1 MILLIGRAM
     Route: 030
  36. HEPARIN [Concomitant]
     Active Substance: HEPARIN SODIUM
     Dosage: 1.5 MILLILITER
     Route: 042
     Dates: start: 20241008
  37. HEPARIN [Concomitant]
     Active Substance: HEPARIN SODIUM
     Dosage: 1.5 MILLILITER
     Route: 042
     Dates: start: 20241017
  38. APRESOLINE HYDROCHLORIDE [Concomitant]
     Active Substance: HYDRALAZINE HYDROCHLORIDE
     Dosage: 10 MILLIGRAM
     Route: 042
     Dates: start: 20241004
  39. CORTEF [Concomitant]
     Active Substance: HYDROCORTISONE
     Dosage: 10 MILLIGRAM, Q8HR
     Route: 048
     Dates: start: 20241023
  40. DILAUDID [Concomitant]
     Active Substance: HYDROMORPHONE HYDROCHLORIDE
     Dosage: 1 MILLIGRAM, Q4HR
     Route: 048
     Dates: start: 20241023
  41. SEMGLEE [Concomitant]
     Dosage: 20 INTERNATIONAL UNIT, BID
     Route: 058
     Dates: start: 20241023
  42. HUMALOG [Concomitant]
     Active Substance: INSULIN LISPRO
     Dosage: 1 INTERNATIONAL UNIT
     Route: 058
     Dates: start: 20241023
  43. PREVACID [Concomitant]
     Active Substance: LANSOPRAZOLE
     Dosage: 30 MILLIGRAM, QD
     Route: 048
     Dates: start: 20241023
  44. SYNTHROID [Concomitant]
     Active Substance: LEVOTHYROXINE SODIUM
     Dosage: 100 MICROGRAM, QD
     Route: 048
     Dates: start: 20241023
  45. MELATONIN [Concomitant]
     Active Substance: MELATONIN
     Dosage: 9 MILLIGRAM
     Route: 050
     Dates: start: 20241022
  46. MEROPENEM [Concomitant]
     Active Substance: MEROPENEM
     Dosage: 2000 MILLIGRAM
     Route: 042
  47. DOLOPHINE [Concomitant]
     Active Substance: METHADONE HYDROCHLORIDE
     Dosage: 10 MILLIGRAM, Q8HR
     Route: 048
     Dates: start: 20231023
  48. ROBAXIN [Concomitant]
     Active Substance: METHOCARBAMOL
     Dosage: 1000 MILLIGRAM, TID
     Route: 048
     Dates: start: 20241019
  49. MORPHINE [Concomitant]
     Active Substance: MORPHINE
     Dosage: UNK
     Route: 042
     Dates: start: 20241023
  50. NARCAN [Concomitant]
     Active Substance: NALOXONE HYDROCHLORIDE
     Dosage: 0.7 MILLIGRAM
     Route: 042
  51. AYGESTIN [Concomitant]
     Active Substance: NORETHINDRONE ACETATE
     Dosage: 5 MILLIGRAM, QD
     Route: 048
     Dates: start: 20241023
  52. ZOFRAN [Concomitant]
     Active Substance: ONDANSETRON HYDROCHLORIDE
     Dosage: 4 MILLIGRAM, Q8HR
     Route: 042
     Dates: start: 20241016
  53. DITROPAN [Concomitant]
     Active Substance: OXYBUTYNIN CHLORIDE
     Dosage: 5 MILLIGRAM
     Route: 048
     Dates: start: 20241022
  54. CHLORASEPTIC SORE THROAT [Concomitant]
     Active Substance: PHENOL
     Dosage: UNK UNK, Q2HR
     Route: 048
  55. BIOTENE NOS [Concomitant]
     Active Substance: UNSPECIFIED INGREDIENT
     Dosage: 5 MILLILITER, BID
     Route: 050
     Dates: start: 20241023
  56. SCOPOLAMINE [Concomitant]
     Active Substance: SCOPOLAMINE
     Dosage: 1 DOSAGE FORM, Q72H
     Route: 062
     Dates: start: 20241022
  57. SIMETHICONE (DIMETHICONE) [Concomitant]
     Active Substance: DIMETHICONE
     Dosage: 80 MILLIGRAM, TID
     Route: 050
     Dates: start: 20241023
  58. OCEAN SALINE NASAL SPRAY [Concomitant]
     Active Substance: SODIUM CHLORIDE
     Dosage: UNK UNK, Q2HR
     Route: 045
     Dates: start: 20241017
  59. SODIUM CHLORIDE [Concomitant]
     Active Substance: SODIUM CHLORIDE
     Dosage: UNK
     Route: 042
  60. PROGRAF [Concomitant]
     Active Substance: TACROLIMUS
     Dosage: 1.5 MILLIGRAM, BID
     Route: 048
     Dates: start: 20241023
  61. VALACYCLOVIR [Concomitant]
     Active Substance: VALACYCLOVIR HYDROCHLORIDE
     Dosage: UNK
     Route: 065
     Dates: start: 20241005
  62. PENTAMIDINE [Concomitant]
     Active Substance: PENTAMIDINE
     Dosage: UNK
     Route: 065
     Dates: start: 20241005

REACTIONS (2)
  - Nasal congestion [Unknown]
  - Product distribution issue [Unknown]
